FAERS Safety Report 18662158 (Version 2)
Quarter: 2020Q4

REPORT INFORMATION
  Report Type: Spontaneous
  Country: AU (occurrence: AU)
  Receive Date: 20201224
  Receipt Date: 20201231
  Transmission Date: 20210114
  Serious: Yes (Other)
  Sender: FDA-Public Use
  Company Number: AU-ALLERGAN-2049187US

PATIENT
  Sex: Female

DRUGS (9)
  1. BUVIDAL [Interacting]
     Active Substance: BUPRENORPHINE
     Dosage: 16 MG, Q WEEK
     Route: 058
     Dates: start: 20200617
  2. AMITRIPTYLINE HYDROCHLORIDE. [Interacting]
     Active Substance: AMITRIPTYLINE HYDROCHLORIDE
     Indication: DEPRESSION
     Dosage: 20 MG, QD
     Route: 065
  3. AMITRIPTYLINE HYDROCHLORIDE. [Interacting]
     Active Substance: AMITRIPTYLINE HYDROCHLORIDE
     Indication: INSOMNIA
     Dosage: 10 MG
     Route: 065
  4. DIAZEPAM. [Interacting]
     Active Substance: DIAZEPAM
     Indication: ANXIETY
     Dosage: UNK
     Route: 065
  5. BUVIDAL [Interacting]
     Active Substance: BUPRENORPHINE
     Dosage: 128 MG, Q MONTH
     Route: 058
     Dates: start: 20200713
  6. BUVIDAL [Interacting]
     Active Substance: BUPRENORPHINE
     Indication: DRUG USE DISORDER
     Dosage: 128 MG, Q MONTH
     Route: 058
     Dates: start: 20200804
  7. BUVIDAL [Interacting]
     Active Substance: BUPRENORPHINE
     Dosage: 32 MG, Q WEEK
     Route: 058
     Dates: start: 20200630
  8. BUVIDAL [Interacting]
     Active Substance: BUPRENORPHINE
     Dosage: 24 MG, Q WEEK
     Route: 058
     Dates: start: 20200623
  9. ESCITALOPRAM OXALATE - BP [Suspect]
     Active Substance: ESCITALOPRAM OXALATE
     Indication: DEPRESSION
     Dosage: 10 MG, UNKNOWN
     Route: 065

REACTIONS (11)
  - Body temperature increased [Recovering/Resolving]
  - Hyperhidrosis [Recovered/Resolved]
  - Feeling abnormal [Not Recovered/Not Resolved]
  - Labelled drug-drug interaction medication error [Unknown]
  - Serotonin syndrome [Recovered/Resolved]
  - Yawning [Recovered/Resolved]
  - Feeling abnormal [Recovering/Resolving]
  - Disturbance in attention [Recovered/Resolved]
  - Flushing [Recovering/Resolving]
  - Malaise [Recovered/Resolved]
  - Drug titration error [Unknown]

NARRATIVE: CASE EVENT DATE: 20200617
